FAERS Safety Report 23379569 (Version 13)
Quarter: 2025Q2

REPORT INFORMATION
  Report Type: Spontaneous
  Country: US (occurrence: US)
  Receive Date: 20240108
  Receipt Date: 20250407
  Transmission Date: 20250716
  Serious: Yes (Other)
  Sender: PFIZER
  Company Number: US-PFIZER INC-202300455268

PATIENT
  Age: 65 Year
  Sex: Female

DRUGS (19)
  1. IBRANCE [Suspect]
     Active Substance: PALBOCICLIB
     Indication: Breast cancer stage IV
     Route: 048
     Dates: start: 20231207, end: 20231213
  2. IBRANCE [Suspect]
     Active Substance: PALBOCICLIB
     Route: 048
     Dates: start: 20231213, end: 20231220
  3. IBRANCE [Suspect]
     Active Substance: PALBOCICLIB
     Route: 048
     Dates: start: 20231227, end: 20240418
  4. IBRANCE [Suspect]
     Active Substance: PALBOCICLIB
     Route: 048
     Dates: start: 20240501
  5. IBRANCE [Suspect]
     Active Substance: PALBOCICLIB
     Route: 048
     Dates: start: 20240708
  6. IBRANCE [Suspect]
     Active Substance: PALBOCICLIB
     Dates: start: 20250224
  7. LETROZOLE [Concomitant]
     Active Substance: LETROZOLE
     Dates: end: 20231220
  8. LETROZOLE [Concomitant]
     Active Substance: LETROZOLE
     Dates: start: 20231227
  9. ALBUTEROL SULFATE [Concomitant]
     Active Substance: ALBUTEROL SULFATE
     Route: 055
  10. ATENOLOL [Concomitant]
     Active Substance: ATENOLOL
  11. BENZONATATE [Concomitant]
     Active Substance: BENZONATATE
  12. GUAIFENESIN [Concomitant]
     Active Substance: GUAIFENESIN
  13. HYDROCHLOROTHIAZIDE [Concomitant]
     Active Substance: HYDROCHLOROTHIAZIDE
  14. LISINOPRIL [Concomitant]
     Active Substance: LISINOPRIL
  15. TRAZODONE [Concomitant]
     Active Substance: TRAZODONE HYDROCHLORIDE
  16. VALACYCLOVIR [Concomitant]
     Active Substance: VALACYCLOVIR HYDROCHLORIDE
  17. ZOLPIDEM [Concomitant]
     Active Substance: ZOLPIDEM TARTRATE
  18. CHLORTHALIDONE [Concomitant]
     Active Substance: CHLORTHALIDONE
  19. CLAVULANATE POTASSIUM [Concomitant]
     Active Substance: CLAVULANATE POTASSIUM

REACTIONS (15)
  - Cataract [Recovering/Resolving]
  - Productive cough [Recovered/Resolved]
  - Cough [Recovered/Resolved]
  - Wheezing [Recovered/Resolved]
  - Renal pain [Unknown]
  - Chromaturia [Unknown]
  - Urine output decreased [Unknown]
  - Functional gastrointestinal disorder [Recovered/Resolved]
  - Blood sodium decreased [Recovered/Resolved]
  - Migraine [Recovered/Resolved]
  - Headache [Unknown]
  - Visual impairment [Recovered/Resolved]
  - Fatigue [Recovered/Resolved]
  - Laboratory test abnormal [Recovered/Resolved]
  - Off label use [Recovered/Resolved]

NARRATIVE: CASE EVENT DATE: 20231207
